FAERS Safety Report 7277407-0 (Version None)
Quarter: 2011Q1

REPORT INFORMATION
  Report Type: 
  Country: None (occurrence: None)
  Receive Date: 20110207
  Receipt Date: 20110126
  Transmission Date: 20110831
  Serious: Yes (Life-Threatening, Hospitalization)
  Sender: FDA-Public Use
  Company Number: FR-SANOFI-AVENTIS-2011SA005181

PATIENT
  Age: 87 Year
  Sex: Female

DRUGS (9)
  1. GLUCOPHAGE [Suspect]
     Route: 048
     Dates: end: 20101115
  2. CONTRAST MEDIA [Suspect]
     Route: 042
     Dates: start: 20101115, end: 20101115
  3. LASIX [Suspect]
     Route: 048
     Dates: end: 20101115
  4. AMLOR [Suspect]
     Route: 048
     Dates: end: 20101015
  5. TANAKAN [Suspect]
     Route: 048
     Dates: end: 20101015
  6. ADRENALINE [Concomitant]
     Indication: CARDIO-RESPIRATORY ARREST
     Dates: start: 20101115, end: 20101115
  7. OLMETEC [Suspect]
     Route: 048
     Dates: end: 20101115
  8. SPASFON [Concomitant]
     Indication: GASTROINTESTINAL DISORDER
     Dates: start: 20101114
  9. SMECTITE [Concomitant]
     Indication: GASTROINTESTINAL DISORDER
     Dates: end: 20101114

REACTIONS (4)
  - ACCIDENTAL OVERDOSE [None]
  - LACTIC ACIDOSIS [None]
  - HYPERKALAEMIA [None]
  - RENAL FAILURE ACUTE [None]
